FAERS Safety Report 5170409-X (Version None)
Quarter: 2006Q4

REPORT INFORMATION
  Report Type: 
  Country: None (occurrence: None)
  Receive Date: 20061212
  Receipt Date: 20061107
  Transmission Date: 20070319
  Serious: Yes (Death, Life-Threatening)
  Sender: FDA-Public Use
  Company Number: JP-SANOFI-SYNTHELABO-A01200609633

PATIENT
  Sex: Male
  Weight: 51 kg

DRUGS (11)
  1. FRESH FROZEN PLASMA [Concomitant]
     Dates: start: 20061022, end: 20061031
  2. CONCENTRATED HUMAN RED BLOOD CELLS [Concomitant]
     Route: 041
     Dates: start: 20061022, end: 20061031
  3. SOLU-MEDROL [Concomitant]
     Route: 041
     Dates: start: 20060914, end: 20061004
  4. LASIX [Concomitant]
     Indication: POLYURIA
     Route: 041
     Dates: start: 20061022, end: 20061110
  5. SEROTONE [Concomitant]
     Route: 041
     Dates: start: 20060222, end: 20061019
  6. DECADRON [Concomitant]
     Route: 041
     Dates: start: 20060222, end: 20061019
  7. FLUOROURACIL [Suspect]
     Indication: RECTAL CANCER
     Dosage: FLUOROURACIL 450MG/BODY=308.2MG/M2 IN BOLUS THEN 700MG/BODY=479.5MG/M2 AS CONTINUOUS INFUSION
     Route: 042
     Dates: start: 20061019, end: 20061020
  8. OXALIPLATIN [Suspect]
     Indication: RECTAL CANCER
     Route: 042
     Dates: start: 20061019, end: 20061019
  9. LEUCOVORIN CALCIUM [Concomitant]
     Route: 042
     Dates: start: 20061019, end: 20061020
  10. LEUCOVORIN CALCIUM [Concomitant]
     Route: 042
     Dates: start: 20060222, end: 20060817
  11. LEUCOVORIN CALCIUM [Concomitant]
     Route: 042
     Dates: start: 20060914, end: 20061005

REACTIONS (3)
  - INTERSTITIAL LUNG DISEASE [None]
  - RENAL FAILURE [None]
  - THROMBOCYTOPENIA [None]
